FAERS Safety Report 15862817 (Version 1)
Quarter: 2018Q4

REPORT INFORMATION
  Report Type: Spontaneous
  Country: US (occurrence: US)
  Receive Date: 20181228
  Receipt Date: 20181228
  Transmission Date: 20190205
  Serious: Yes (Other)
  Sender: FDA-Public Use
  Company Number: None

PATIENT
  Age: 85 Year
  Sex: Male

DRUGS (1)
  1. IBRUTINIB [Suspect]
     Active Substance: IBRUTINIB
     Indication: NEOPLASM MALIGNANT
     Route: 048
     Dates: start: 20180607, end: 20180921

REACTIONS (1)
  - Hepatitis B [None]

NARRATIVE: CASE EVENT DATE: 20180921
